FAERS Safety Report 9511374 (Version 5)
Quarter: 2014Q2

REPORT INFORMATION
  Report Type: Spontaneous
  Country: IT (occurrence: IT)
  Receive Date: 20130910
  Receipt Date: 20140506
  Transmission Date: 20141212
  Serious: Yes (Life-Threatening)
  Sender: FDA-Public Use
  Company Number: IT-JNJFOC-20130902231

PATIENT
  Age: 38 Year
  Sex: Male
  Weight: 110 kg

DRUGS (8)
  1. INVEGA [Suspect]
     Indication: DEPRESSION
     Route: 048
     Dates: start: 20130311, end: 20130903
  2. LORAZEPAM [Interacting]
     Indication: DEPRESSION
     Route: 048
     Dates: start: 20130311, end: 20130903
  3. DEPAKIN [Interacting]
     Indication: DEPRESSION
     Route: 048
     Dates: start: 20130311, end: 20130903
  4. TRANQUIRIT [Interacting]
     Indication: DEPRESSION
     Dosage: 0.5%
     Route: 048
     Dates: start: 20130311, end: 20130903
  5. VENLAFAXINE [Interacting]
     Indication: DEPRESSION
     Route: 048
     Dates: start: 20130311, end: 20130903
  6. AKINETON [Interacting]
     Indication: DEPRESSION
     Route: 048
     Dates: start: 20130311, end: 20130903
  7. CIPRALEX [Interacting]
     Indication: DEPRESSION
     Route: 048
     Dates: start: 20130311, end: 20130903
  8. ETHANOL [Interacting]
     Indication: PRODUCT USED FOR UNKNOWN INDICATION
     Route: 065

REACTIONS (5)
  - Coma [Recovered/Resolved]
  - Self injurious behaviour [Unknown]
  - Bradypnoea [Unknown]
  - Intentional overdose [Unknown]
  - Drug interaction [Unknown]
